FAERS Safety Report 16133060 (Version 1)
Quarter: 2019Q2

REPORT INFORMATION
  Report Type: Spontaneous
  Country: US (occurrence: US)
  Receive Date: 20190328
  Receipt Date: 20190328
  Transmission Date: 20190711
  Serious: Yes (Death)
  Sender: FDA-Public Use
  Company Number: None

PATIENT
  Sex: Male

DRUGS (16)
  1. ALLOPURINOL. [Concomitant]
     Active Substance: ALLOPURINOL
  2. SERTRALINE [Concomitant]
     Active Substance: SERTRALINE HYDROCHLORIDE
  3. TAMSULOSIN [Concomitant]
     Active Substance: TAMSULOSIN
  4. GABAPENTIN. [Concomitant]
     Active Substance: GABAPENTIN
  5. BRILINTA [Concomitant]
     Active Substance: TICAGRELOR
  6. LISINOPRIL. [Concomitant]
     Active Substance: LISINOPRIL
  7. PLAVIX [Concomitant]
     Active Substance: CLOPIDOGREL BISULFATE
  8. SPIRONOLACT [Concomitant]
     Active Substance: SPIRONOLACTONE
  9. ROPINIROLE. [Concomitant]
     Active Substance: ROPINIROLE
  10. NEURONTIN [Concomitant]
     Active Substance: GABAPENTIN
  11. ENBREL [Suspect]
     Active Substance: ETANERCEPT
     Indication: PSORIATIC ARTHROPATHY
     Dosage: ?          OTHER FREQUENCY:ONCE A WEEK;?
     Route: 058
     Dates: start: 20150715, end: 20190326
  12. TOPROL XL [Concomitant]
     Active Substance: METOPROLOL SUCCINATE
  13. PANTOPRAZOLE [Concomitant]
     Active Substance: PANTOPRAZOLE
  14. SIMVASTATIN. [Concomitant]
     Active Substance: SIMVASTATIN
  15. ASPIRIN. [Concomitant]
     Active Substance: ASPIRIN
  16. FEXOFENADINE [Concomitant]
     Active Substance: FEXOFENADINE\FEXOFENADINE HYDROCHLORIDE

REACTIONS (1)
  - Death [None]
